FAERS Safety Report 13612674 (Version 1)
Quarter: 2017Q2

REPORT INFORMATION
  Report Type: Spontaneous
  Country: BE (occurrence: BE)
  Receive Date: 20170605
  Receipt Date: 20170605
  Transmission Date: 20170830
  Serious: Yes (Hospitalization)
  Sender: FDA-Public Use
  Company Number: BE-OTSUKA-2017_012139

PATIENT
  Sex: Male

DRUGS (2)
  1. ABILIFY MAINTENA [Suspect]
     Active Substance: ARIPIPRAZOLE
     Dosage: 400 MG, UNK
     Route: 030
  2. ABILIFY MAINTENA [Suspect]
     Active Substance: ARIPIPRAZOLE
     Indication: SCHIZOAFFECTIVE DISORDER
     Dosage: 200 MG, UNK
     Route: 065
     Dates: start: 20160324

REACTIONS (6)
  - Eye movement disorder [Unknown]
  - Incorrect dose administered [Unknown]
  - Compulsions [Unknown]
  - Malaise [Unknown]
  - Restlessness [Unknown]
  - Off label use [Unknown]

NARRATIVE: CASE EVENT DATE: 20160324
